FAERS Safety Report 7115326-0 (Version None)
Quarter: 2010Q4

REPORT INFORMATION
  Report Type: 
  Country: None (occurrence: None)
  Receive Date: 20101122
  Receipt Date: 20101112
  Transmission Date: 20110411
  Serious: Yes (Other)
  Sender: FDA-Public Use
  Company Number: US-TYCO HEALTHCARE/MALLINCKRODT-T201002287

PATIENT
  Age: 9 Year

DRUGS (1)
  1. SODIUM IODIDE I 131 [Suspect]
     Indication: THYROID CANCER METASTATIC
     Dosage: UNK

REACTIONS (3)
  - BRONCHIECTASIS [None]
  - PULMONARY RADIATION INJURY [None]
  - RESTRICTIVE PULMONARY DISEASE [None]
